FAERS Safety Report 7206865-2 (Version None)
Quarter: 2010Q4

REPORT INFORMATION
  Report Type: 
  Country: None (occurrence: None)
  Receive Date: 20101217
  Receipt Date: 20101207
  Transmission Date: 20110411
  Serious: Yes (Hospitalization)
  Sender: FDA-Public Use
  Company Number: TPA2010A06217

PATIENT
  Age: 72 Year
  Sex: Male

DRUGS (6)
  1. ADENURIC (FEBUXOSTAT) [Suspect]
     Indication: GOUT
     Dosage: 80 MG (80 MG, 1 IN 1 D) ORAL
     Route: 048
     Dates: start: 20100520, end: 20100910
  2. METOPROLOL SUCCINATE [Concomitant]
  3. METFORMIN HCL [Concomitant]
  4. DOLGIT (IBUPROFEN) [Concomitant]
  5. DOXAZOSIN MESYLATE [Concomitant]
  6. MARCUMAR [Concomitant]

REACTIONS (4)
  - ACUTE MYOCARDIAL INFARCTION [None]
  - CARDIAC FAILURE [None]
  - CONDITION AGGRAVATED [None]
  - RENAL FAILURE [None]
